FAERS Safety Report 12165544 (Version 1)
Quarter: 2016Q1

REPORT INFORMATION
  Report Type: Spontaneous
  Country: US (occurrence: US)
  Receive Date: 20160309
  Receipt Date: 20160309
  Transmission Date: 20160526
  Serious: No
  Sender: FDA-Public Use
  Company Number: US-SHIRE-US-000739

PATIENT
  Age: 57 Year
  Sex: Female
  Weight: 64 kg

DRUGS (6)
  1. GATTEX [Suspect]
     Active Substance: TEDUGLUTIDE\WATER
     Indication: SHORT-BOWEL SYNDROME
     Dosage: STREN/VOLUM: 0.325 ML|FREQU: ONCE DAILY
     Route: 058
     Dates: start: 20130705
  2. DEMEROL [Concomitant]
     Active Substance: MEPERIDINE HYDROCHLORIDE
     Indication: PAIN
     Dosage: STREN/VOLUM: 100 MG|FREQU: EVERY 3-4 HOURS AS NEEDED
     Dates: start: 2011
  3. PHENERGAN [Concomitant]
     Active Substance: PROMETHAZINE HYDROCHLORIDE
     Indication: NAUSEA
     Dosage: STREN/VOLUM: 25 MG|FREQU: EVERY 4-6 HOURS AS NEEDED
     Dates: start: 2010
  4. FENTORA [Concomitant]
     Active Substance: FENTANYL CITRATE
     Indication: PAIN
     Dosage: STREN/VOLUM: 600 MG|FREQU: EVERY 3-4 HOURS AS NEEDED
     Dates: start: 201305
  5. MORPHINE [Concomitant]
     Active Substance: MORPHINE
     Indication: PAIN
     Dosage: STREN/VOLUM: 8 MG|FREQU: EVERY 3-4 HOURS AS NEEDED
     Dates: start: 2011
  6. ZOFRAN [Concomitant]
     Active Substance: ONDANSETRON HYDROCHLORIDE
     Indication: NAUSEA
     Dosage: STREN/VOLUM: 8 MG|FREQU: EVERY 4-6 HOURS AS NEEDED
     Dates: start: 2010

REACTIONS (3)
  - Nausea [Recovered/Resolved]
  - Weight increased [Not Recovered/Not Resolved]
  - Vomiting [Recovered/Resolved]

NARRATIVE: CASE EVENT DATE: 20130706
